FAERS Safety Report 26182426 (Version 3)
Quarter: 2025Q4

REPORT INFORMATION
  Report Type: Spontaneous
  Country: US (occurrence: US)
  Receive Date: 20251221
  Receipt Date: 20251225
  Transmission Date: 20260117
  Serious: No
  Sender: SANOFI AVENTIS
  Company Number: US-SA-2025SA379358

PATIENT
  Age: 52 Year
  Sex: Male

DRUGS (1)
  1. DUPIXENT [Suspect]
     Active Substance: DUPILUMAB
     Indication: Eosinophilic oesophagitis

REACTIONS (3)
  - Skin burning sensation [Unknown]
  - Accidental exposure to product [Unknown]
  - Exposure via skin contact [Unknown]
